FAERS Safety Report 16181337 (Version 1)
Quarter: 2019Q2

REPORT INFORMATION
  Report Type: Spontaneous
  Country: BR (occurrence: BR)
  Receive Date: 20190410
  Receipt Date: 20190410
  Transmission Date: 20190711
  Serious: Yes (Other)
  Sender: FDA-Public Use
  Company Number: PHHY2019BR082095

PATIENT
  Sex: Male
  Weight: 95 kg

DRUGS (4)
  1. CODATEN [Suspect]
     Active Substance: CODEINE PHOSPHATE\DICLOFENAC SODIUM
     Indication: RENAL PAIN
  2. BUSCOPAN COMP [Concomitant]
     Indication: PAIN
     Route: 065
  3. CODATEN [Suspect]
     Active Substance: CODEINE PHOSPHATE\DICLOFENAC SODIUM
     Indication: NEPHROLITHIASIS
     Dosage: USE UP TO 4 TIMES A DAY
     Route: 048
     Dates: start: 2008
  4. PARACETAMOL [Concomitant]
     Active Substance: ACETAMINOPHEN
     Indication: PAIN
     Route: 065

REACTIONS (3)
  - Pain [Recovering/Resolving]
  - Nephrolithiasis [Recovering/Resolving]
  - Inappropriate schedule of product administration [Unknown]

NARRATIVE: CASE EVENT DATE: 2008
